FAERS Safety Report 11835995 (Version 1)
Quarter: 2015Q4

REPORT INFORMATION
  Report Type: Spontaneous
  Country: US (occurrence: US)
  Receive Date: 20151215
  Receipt Date: 20151215
  Transmission Date: 20160305
  Serious: No
  Sender: FDA-Public Use
  Company Number: US-WATSON-2015-01003

PATIENT
  Age: 56 Year
  Sex: Male

DRUGS (1)
  1. MINOXIDIL (AMALLC) [Suspect]
     Active Substance: MINOXIDIL
     Indication: ALOPECIA
     Dosage: UNK, QHS
     Route: 061
     Dates: start: 201501

REACTIONS (2)
  - Skin irritation [Recovered/Resolved]
  - Skin burning sensation [Recovered/Resolved]
